FAERS Safety Report 7912662-2 (Version None)
Quarter: 2011Q4

REPORT INFORMATION
  Report Type: 
  Country: None (occurrence: None)
  Receive Date: 20111114
  Receipt Date: 20110804
  Transmission Date: 20120403
  Serious: No
  Sender: FDA-Public Use
  Company Number: US-BAYER-2011-071593

PATIENT
  Sex: Female
  Weight: 63 kg

DRUGS (2)
  1. TRIBURON [Concomitant]
  2. ALEVE [Suspect]
     Indication: HEADACHE
     Dosage: UNK
     Route: 048
     Dates: start: 20110804, end: 20110804

REACTIONS (1)
  - HEADACHE [None]
